FAERS Safety Report 9595939 (Version 2)
Quarter: 2013Q4

REPORT INFORMATION
  Report Type: Spontaneous
  Country: US (occurrence: US)
  Receive Date: 20131004
  Receipt Date: 20131004
  Transmission Date: 20140711
  Serious: No
  Sender: FDA-Public Use
  Company Number: US-PURDUE-USA-2012-0091883

PATIENT
  Sex: Female

DRUGS (1)
  1. BUTRANS [Suspect]
     Indication: PRODUCT USED FOR UNKNOWN INDICATION
     Dosage: 5 MCG/HR, UNK
     Route: 062

REACTIONS (7)
  - Application site rash [Not Recovered/Not Resolved]
  - Application site pruritus [Unknown]
  - Device leakage [Unknown]
  - Application site erythema [Unknown]
  - Inadequate analgesia [Unknown]
  - Headache [Unknown]
  - Drug effect decreased [Unknown]
